FAERS Safety Report 12941282 (Version 1)
Quarter: 2016Q4

REPORT INFORMATION
  Report Type: Spontaneous
  Country: US (occurrence: US)
  Receive Date: 20161115
  Receipt Date: 20161115
  Transmission Date: 20170207
  Serious: Yes (Hospitalization)
  Sender: FDA-Public Use
  Company Number: None

PATIENT
  Age: 84 Year
  Sex: Female
  Weight: 67.6 kg

DRUGS (12)
  1. LOVENOX [Suspect]
     Active Substance: ENOXAPARIN SODIUM
     Indication: DEEP VEIN THROMBOSIS
     Dosage: RECENT
     Route: 058
  2. COUMADIN [Suspect]
     Active Substance: WARFARIN SODIUM
  3. PEPCID [Concomitant]
     Active Substance: FAMOTIDINE
  4. MIRALX [Concomitant]
  5. ACYCLOVIR. [Concomitant]
     Active Substance: ACYCLOVIR
  6. HUMALOG [Concomitant]
     Active Substance: INSULIN LISPRO
  7. PERCOCET [Concomitant]
     Active Substance: ACETAMINOPHEN\OXYCODONE HYDROCHLORIDE
  8. MERREM [Concomitant]
     Active Substance: MEROPENEM
  9. LASIX [Concomitant]
     Active Substance: FUROSEMIDE
  10. HEPARIN [Suspect]
     Active Substance: HEPARIN SODIUM
     Indication: DEEP VEIN THROMBOSIS
     Dosage: RECENT
     Route: 048
  11. AMLODIPINE [Concomitant]
     Active Substance: AMLODIPINE BESYLATE
  12. NORVASC [Concomitant]
     Active Substance: AMLODIPINE BESYLATE

REACTIONS (2)
  - Subdural haemorrhage [None]
  - Confusional state [None]

NARRATIVE: CASE EVENT DATE: 20150729
